FAERS Safety Report 12892644 (Version 1)
Quarter: 2016Q4

REPORT INFORMATION
  Report Type: Spontaneous
  Country: US (occurrence: US)
  Receive Date: 20161028
  Receipt Date: 20161028
  Transmission Date: 20170207
  Serious: Yes (Hospitalization)
  Sender: FDA-Public Use
  Company Number: None

PATIENT
  Age: 63 Year
  Sex: Female
  Weight: 121.6 kg

DRUGS (7)
  1. METHADONE [Suspect]
     Active Substance: METHADONE HYDROCHLORIDE
     Indication: PAIN
     Dosage: METHADONE - DATES OF USE - CHRONIC
     Route: 048
  2. CYMBALTA [Concomitant]
     Active Substance: DULOXETINE HYDROCHLORIDE
  3. ROCALTROL [Concomitant]
     Active Substance: CALCITRIOL
  4. VITAMIN BQW [Concomitant]
  5. ASCORBIC ACID. [Concomitant]
     Active Substance: ASCORBIC ACID
  6. MINERAL OIL. [Concomitant]
     Active Substance: MINERAL OIL
  7. COLACE [Concomitant]
     Active Substance: DOCUSATE SODIUM

REACTIONS (4)
  - Acute respiratory failure [None]
  - Encephalopathy [None]
  - Mental status changes [None]
  - Hypercapnia [None]

NARRATIVE: CASE EVENT DATE: 20150402
